FAERS Safety Report 6835163-1 (Version None)
Quarter: 2010Q3

REPORT INFORMATION
  Report Type: 
  Country: None (occurrence: None)
  Receive Date: 20100713
  Receipt Date: 20100603
  Transmission Date: 20110219
  Serious: No
  Sender: FDA-Public Use
  Company Number: 2007BI007729

PATIENT
  Age: 35 Year
  Sex: Male

DRUGS (1)
  1. TYSABRI [Suspect]
     Indication: MULTIPLE SCLEROSIS
     Route: 042
     Dates: start: 20070209

REACTIONS (4)
  - DYSPHAGIA [None]
  - ERYTHEMA [None]
  - FLUSHING [None]
  - HEART RATE INCREASED [None]
